FAERS Safety Report 15698735 (Version 2)
Quarter: 2018Q4

REPORT INFORMATION
  Report Type: Report from Study
  Country: AU (occurrence: AU)
  Receive Date: 20181207
  Receipt Date: 20181212
  Transmission Date: 20190205
  Serious: Yes (Hospitalization)
  Sender: FDA-Public Use
  Company Number: AU-ROCHE-2224349

PATIENT
  Age: 40 Year
  Sex: Female
  Weight: 72 kg

DRUGS (10)
  1. OBINUTUZUMAB. [Suspect]
     Active Substance: OBINUTUZUMAB
     Indication: DIFFUSE LARGE B-CELL LYMPHOMA
     Dosage: ON DAYS 1, 8, AND 15 OF CYCLE 1 AND ON DAY 1 OF CYCLES 2-6, DURING INDUCTION TREATMENT, FOLLOWED BY
     Route: 042
     Dates: start: 20160825
  2. BACTRIM [Concomitant]
     Active Substance: SULFAMETHOXAZOLE\TRIMETHOPRIM
     Indication: PROPHYLAXIS
     Route: 065
     Dates: start: 20160827
  3. GROW FACTORS (GCSF FILGRASTIM) [Concomitant]
     Route: 065
     Dates: start: 20180709
  4. BENDAMUSTINE [Suspect]
     Active Substance: BENDAMUSTINE
     Indication: DIFFUSE LARGE B-CELL LYMPHOMA
     Dosage: ON DAYS 1 AND 2 OF CYCLES 1-6, DURING INDUCTION TREATMENT?THE MOST RECENT DOSE PRIOR TO THE ONSET OF
     Route: 042
     Dates: start: 20160825
  5. NEXIUM [Concomitant]
     Active Substance: ESOMEPRAZOLE MAGNESIUM
     Indication: GASTROOESOPHAGEAL REFLUX DISEASE
     Route: 065
     Dates: start: 20180118
  6. IBUPROFEN. [Concomitant]
     Active Substance: IBUPROFEN
     Indication: FEBRILE NEUTROPENIA
     Route: 065
     Dates: start: 20181129
  7. GROW FACTORS (GCSF FILGRASTIM) [Concomitant]
     Route: 065
     Dates: start: 20181103
  8. ACICLOVIR [Concomitant]
     Active Substance: ACYCLOVIR
     Indication: PROPHYLAXIS
     Route: 065
     Dates: start: 20160827
  9. PARACETAMOL [Concomitant]
     Active Substance: ACETAMINOPHEN
     Indication: FEBRILE NEUTROPENIA
     Route: 065
     Dates: start: 20181129
  10. ATEZOLIZUMAB. [Suspect]
     Active Substance: ATEZOLIZUMAB
     Indication: DIFFUSE LARGE B-CELL LYMPHOMA
     Dosage: ON DAYS 1 AND 15 OF CYCLES 2-6, DURING INDUCTION TREATMENT, FOLLOWED BY 840 MG IV ON DAYS 1 AND 2 OF
     Route: 042
     Dates: start: 20160922

REACTIONS (1)
  - Febrile neutropenia [Recovered/Resolved]

NARRATIVE: CASE EVENT DATE: 20181130
